FAERS Safety Report 11638255 (Version 1)
Quarter: 2015Q4

REPORT INFORMATION
  Report Type: Spontaneous
  Country: US (occurrence: US)
  Receive Date: 20151016
  Receipt Date: 20151016
  Transmission Date: 20160304
  Serious: Yes (Hospitalization)
  Sender: FDA-Public Use
  Company Number: US-ASTRAZENECA-2015SE98869

PATIENT
  Age: 29 Year
  Sex: Female
  Weight: 59 kg

DRUGS (25)
  1. SEROQUEL XR [Suspect]
     Active Substance: QUETIAPINE FUMARATE
     Indication: POST-TRAUMATIC STRESS DISORDER
     Route: 048
     Dates: start: 20151007, end: 20151008
  2. SEROQUEL XR [Suspect]
     Active Substance: QUETIAPINE FUMARATE
     Indication: BIPOLAR I DISORDER
     Route: 048
     Dates: start: 20151008
  3. SEROQUEL XR [Suspect]
     Active Substance: QUETIAPINE FUMARATE
     Indication: MANIA
     Route: 048
     Dates: start: 20151008
  4. LITHIUM. [Concomitant]
     Active Substance: LITHIUM
     Indication: MANIA
     Route: 065
     Dates: start: 201508, end: 20151005
  5. CLONAZEPAM. [Concomitant]
     Active Substance: CLONAZEPAM
     Indication: PAIN IN EXTREMITY
     Route: 065
     Dates: start: 201504
  6. SEROQUEL XR [Suspect]
     Active Substance: QUETIAPINE FUMARATE
     Indication: POST-TRAUMATIC STRESS DISORDER
     Route: 048
     Dates: start: 20151006, end: 20151007
  7. XANAX [Concomitant]
     Active Substance: ALPRAZOLAM
     Dosage: UNKNOWN
     Route: 065
  8. LITHIUM. [Concomitant]
     Active Substance: LITHIUM
     Indication: BIPOLAR I DISORDER
     Route: 065
     Dates: start: 201508, end: 20151005
  9. SEROQUEL XR [Suspect]
     Active Substance: QUETIAPINE FUMARATE
     Indication: POST-TRAUMATIC STRESS DISORDER
     Dosage: QUETIAPINE FUMARATE, 100 MG, AT NIGHT
     Route: 048
     Dates: start: 201311, end: 201508
  10. SEROQUEL XR [Suspect]
     Active Substance: QUETIAPINE FUMARATE
     Indication: BIPOLAR I DISORDER
     Route: 048
     Dates: start: 20151006, end: 20151007
  11. SEROQUEL XR [Suspect]
     Active Substance: QUETIAPINE FUMARATE
     Indication: BIPOLAR I DISORDER
     Route: 048
     Dates: start: 20151007, end: 20151008
  12. SEROQUEL XR [Suspect]
     Active Substance: QUETIAPINE FUMARATE
     Indication: POST-TRAUMATIC STRESS DISORDER
     Route: 048
     Dates: start: 20151008
  13. NEXIUM [Suspect]
     Active Substance: ESOMEPRAZOLE MAGNESIUM
     Indication: GASTRIC ULCER
     Route: 048
  14. OMEPRAZOLE. [Suspect]
     Active Substance: OMEPRAZOLE
     Indication: GASTRIC ULCER
     Route: 048
     Dates: start: 2010
  15. SEROQUEL XR [Suspect]
     Active Substance: QUETIAPINE FUMARATE
     Indication: MANIA
     Route: 048
     Dates: start: 20151007, end: 20151008
  16. SPIRONOLACTONE. [Concomitant]
     Active Substance: SPIRONOLACTONE
     Indication: PERIPHERAL SWELLING
     Dosage: UNKNOWN
     Route: 065
  17. NEXIUM [Suspect]
     Active Substance: ESOMEPRAZOLE MAGNESIUM
     Indication: GASTRIC ULCER
     Dosage: ESOMEPRAZOLE MAGNESIUM, 40 MG DAILY
     Route: 065
     Dates: start: 201501
  18. SEROQUEL XR [Suspect]
     Active Substance: QUETIAPINE FUMARATE
     Indication: MANIA
     Dosage: QUETIAPINE FUMARATE, 100 MG, AT NIGHT
     Route: 048
     Dates: start: 201311, end: 201508
  19. PROMETHAZINE [Concomitant]
     Active Substance: PROMETHAZINE\PROMETHAZINE HYDROCHLORIDE
     Indication: NAUSEA
     Route: 065
     Dates: start: 2004
  20. DIAZEPAM. [Concomitant]
     Active Substance: DIAZEPAM
     Indication: TENSION
     Route: 065
     Dates: start: 201504
  21. SEROQUEL XR [Suspect]
     Active Substance: QUETIAPINE FUMARATE
     Indication: BIPOLAR I DISORDER
     Dosage: QUETIAPINE FUMARATE, 100 MG, AT NIGHT
     Route: 048
     Dates: start: 201311, end: 201508
  22. SEROQUEL XR [Suspect]
     Active Substance: QUETIAPINE FUMARATE
     Indication: MANIA
     Route: 048
     Dates: start: 20151006, end: 20151007
  23. DIAZEPAM. [Concomitant]
     Active Substance: DIAZEPAM
     Indication: HYPOTONIA
     Route: 065
     Dates: start: 201504
  24. FUROSEMIDE. [Concomitant]
     Active Substance: FUROSEMIDE
     Indication: PERIPHERAL SWELLING
     Route: 065
  25. LITHIUM. [Concomitant]
     Active Substance: LITHIUM
     Indication: POST-TRAUMATIC STRESS DISORDER
     Route: 065
     Dates: start: 201508, end: 20151005

REACTIONS (18)
  - Clostridium difficile infection [Unknown]
  - Musculoskeletal chest pain [Unknown]
  - Peripheral swelling [Unknown]
  - Bipolar I disorder [Unknown]
  - Hepatic infection [Unknown]
  - Tic [Unknown]
  - Abdominal distension [Unknown]
  - Pain [Unknown]
  - Post-traumatic stress disorder [Unknown]
  - Off label use [Unknown]
  - Malaise [Unknown]
  - Fluid retention [Unknown]
  - Product use issue [Unknown]
  - Oesophageal ulcer [Unknown]
  - Off label use [Unknown]
  - Drug ineffective [Unknown]
  - Mental disorder [Unknown]
  - Impaired gastric emptying [Unknown]

NARRATIVE: CASE EVENT DATE: 2012
